FAERS Safety Report 14169590 (Version 4)
Quarter: 2018Q2

REPORT INFORMATION
  Report Type: Report from Study
  Country: CA (occurrence: CA)
  Receive Date: 20171108
  Receipt Date: 20180530
  Transmission Date: 20180711
  Serious: No
  Sender: FDA-Public Use
  Company Number: CA-ROCHE-2021628

PATIENT
  Age: 40 Year
  Sex: Female

DRUGS (2)
  1. OCREVUS [Suspect]
     Active Substance: OCRELIZUMAB
     Indication: PRIMARY PROGRESSIVE MULTIPLE SCLEROSIS
     Dosage: AE OCCURED AFTER LOADING DOSE 1 OF 2
     Route: 042
     Dates: start: 20171026
  2. OCREVUS [Suspect]
     Active Substance: OCRELIZUMAB
     Indication: RELAPSING-REMITTING MULTIPLE SCLEROSIS

REACTIONS (7)
  - Skin irritation [Unknown]
  - Urinary tract infection [Recovered/Resolved]
  - Perfume sensitivity [Unknown]
  - Urticaria [Not Recovered/Not Resolved]
  - Dry skin [Unknown]
  - Rash pruritic [Not Recovered/Not Resolved]
  - Dermatitis contact [Unknown]

NARRATIVE: CASE EVENT DATE: 20171105
